FAERS Safety Report 8663195 (Version 4)
Quarter: 2017Q2

REPORT INFORMATION
  Report Type: Report from Study
  Country: CH (occurrence: CH)
  Receive Date: 20120713
  Receipt Date: 20170414
  Transmission Date: 20170830
  Serious: Yes (Life-Threatening, Other)
  Sender: FDA-Public Use
  Company Number: PHHY2012CH059530

PATIENT
  Age: 17 Year
  Sex: Female
  Weight: 51 kg

DRUGS (3)
  1. EXJADE [Suspect]
     Active Substance: DEFERASIROX
     Indication: HAEMOSIDEROSIS
     Dosage: 3 DF, DAILY
     Route: 048
     Dates: start: 20111028
  2. EXJADE [Suspect]
     Active Substance: DEFERASIROX
     Indication: THALASSAEMIA BETA
     Dosage: 30 MG/KG, DAILY
     Route: 048
  3. PANTOZOL [Concomitant]
     Active Substance: PANTOPRAZOLE SODIUM
     Indication: DYSPEPSIA
     Dosage: UNK UNK, QD
     Route: 048
     Dates: start: 20120521

REACTIONS (9)
  - Flank pain [Recovered/Resolved]
  - Renal tubular acidosis [Recovered/Resolved]
  - Abdominal pain lower [Recovered/Resolved]
  - Nausea [Recovered/Resolved]
  - Back pain [Recovered/Resolved]
  - Dyspepsia [Recovered/Resolved]
  - Metabolic acidosis [Recovered/Resolved]
  - Vomiting [Recovered/Resolved]
  - Drug therapeutic incompatibility [Unknown]

NARRATIVE: CASE EVENT DATE: 20120523
